FAERS Safety Report 15108618 (Version 1)
Quarter: 2018Q3

REPORT INFORMATION
  Report Type: Spontaneous
  Country: IT (occurrence: IT)
  Receive Date: 20180705
  Receipt Date: 20180705
  Transmission Date: 20181010
  Serious: Yes (Hospitalization, Other)
  Sender: FDA-Public Use
  Company Number: IT-TEVA-2018-IT-918609

PATIENT
  Age: 43 Year
  Sex: Female

DRUGS (4)
  1. PACLITAXEL. [Suspect]
     Active Substance: PACLITAXEL
     Indication: BREAST CANCER
     Dosage: DAY 1, 15 EVERY 28 DAYS
     Route: 065
     Dates: start: 201612, end: 201711
  2. AVASTIN [Suspect]
     Active Substance: BEVACIZUMAB
     Indication: BREAST CANCER
     Dosage: 10 MG/M2, Q3WK
     Route: 042
     Dates: start: 201612, end: 201711
  3. AVASTIN [Suspect]
     Active Substance: BEVACIZUMAB
     Dosage: 10 MG/M2, Q3WK
     Route: 042
     Dates: start: 201711
  4. XGEVA [Suspect]
     Active Substance: DENOSUMAB
     Indication: BREAST CANCER
     Dosage: 120 MG, Q4WK
     Route: 065
     Dates: start: 201612, end: 201702

REACTIONS (5)
  - Hypocalcaemia [Unknown]
  - Paraesthesia [Unknown]
  - Thrombocytopenia [Unknown]
  - Neurotoxicity [Unknown]
  - Anaemia [Recovered/Resolved]

NARRATIVE: CASE EVENT DATE: 2017
